FAERS Safety Report 5126221-0 (Version None)
Quarter: 2006Q3

REPORT INFORMATION
  Report Type: 
  Country: None (occurrence: None)
  Receive Date: 20060824
  Receipt Date: 20060428
  Transmission Date: 20061208
  Serious: Yes (Hospitalization)
  Sender: FDA-Public Use
  Company Number: WAES 0604USA01004

PATIENT
  Age: 65 Year
  Sex: Male
  Weight: 105.2345 kg

DRUGS (4)
  1. VYTORIN [Suspect]
     Indication: BLOOD CHOLESTEROL INCREASED
     Dosage: 10-40 MG/DAILY/PO
     Route: 048
     Dates: start: 20041001, end: 20060302
  2. VYTORIN [Suspect]
     Indication: HYPERLIPIDAEMIA
     Dosage: 10-40 MG/DAILY/PO
     Route: 048
     Dates: start: 20041001, end: 20060302
  3. HYDRODIURIL [Concomitant]
  4. SINGULAIR [Concomitant]

REACTIONS (1)
  - SWOLLEN TONGUE [None]
